FAERS Safety Report 4403826-3 (Version None)
Quarter: 2004Q3

REPORT INFORMATION
  Report Type: 
  Country: None (occurrence: None)
  Receive Date: 20040719
  Receipt Date: 20040705
  Transmission Date: 20050211
  Serious: Yes (Death)
  Sender: FDA-Public Use
  Company Number: 04P-16-0266013-00

PATIENT
  Age: 68 Year
  Sex: Female
  Weight: 80 kg

DRUGS (6)
  1. CLARITHROMYCIN (BIAXIN) (CLARITHROMYCIN) (CLARITHRMYCIN) [Suspect]
     Indication: LOWER RESPIRATORY TRACT INFECTION
     Dosage: PER ORAL
     Route: 048
     Dates: start: 20031101, end: 20031101
  2. PAROXETINE HCL [Suspect]
     Indication: DEPRESSION
     Dosage: PER ORAL
     Route: 048
     Dates: start: 20031001, end: 20031101
  3. THEOPHYLLINE [Suspect]
  4. HORMONE REPLACEMENT [Concomitant]
  5. ANTACID TAB [Concomitant]
  6. METERED DOSE NEBULIZER [Concomitant]

REACTIONS (11)
  - CARDIAC FAILURE [None]
  - CARDIOMYOPATHY [None]
  - CARDIOTOXICITY [None]
  - CORONARY ARTERY ATHEROSCLEROSIS [None]
  - CORONARY ARTERY OCCLUSION [None]
  - CORONARY ARTERY THROMBOSIS [None]
  - DEPRESSION [None]
  - DRUG INTERACTION [None]
  - ELECTROCARDIOGRAM ABNORMAL [None]
  - LOWER RESPIRATORY TRACT INFECTION [None]
  - MYOCARDIAL INFARCTION [None]
